FAERS Safety Report 6096185-4 (Version None)
Quarter: 2009Q1

REPORT INFORMATION
  Report Type: 
  Country: None (occurrence: None)
  Receive Date: 20090227
  Receipt Date: 20080919
  Transmission Date: 20090719
  Serious: No
  Sender: FDA-Public Use
  Company Number: A0749301A

PATIENT
  Sex: Female

DRUGS (1)
  1. LAMOTRIGINE [Suspect]
     Indication: DRUG USE FOR UNKNOWN INDICATION
     Route: 048

REACTIONS (1)
  - ADVERSE DRUG REACTION [None]
